FAERS Safety Report 17925089 (Version 1)
Quarter: 2020Q2

REPORT INFORMATION
  Report Type: Spontaneous
  Country: JP (occurrence: JP)
  Receive Date: 20200622
  Receipt Date: 20200622
  Transmission Date: 20200714
  Serious: Yes (Other)
  Sender: FDA-Public Use
  Company Number: JP-PFIZER INC-2020237404

PATIENT
  Sex: Male

DRUGS (1)
  1. SOLANAX [Suspect]
     Active Substance: ALPRAZOLAM
     Dosage: AS NEEDED BASIS
     Route: 048

REACTIONS (4)
  - Off label use [Unknown]
  - Asthenia [Unknown]
  - Product use issue [Unknown]
  - Convulsions local [Unknown]
